FAERS Safety Report 8886233 (Version 1)
Quarter: 2012Q4

REPORT INFORMATION
  Report Type: 
  Country: US (occurrence: US)
  Receive Date: 20121105
  Receipt Date: 20121105
  Transmission Date: 20130627
  Serious: No
  Sender: FDA-Public Use
  Company Number: US-PFIZER INC-2012273429

PATIENT
  Age: 58 Year
  Sex: Female
  Weight: 109 kg

DRUGS (10)
  1. LYRICA [Suspect]
     Indication: NERVE DAMAGE
     Dosage: 100 mg, 2x/day
     Dates: start: 201209, end: 201209
  2. LYRICA [Suspect]
     Indication: MUSCLE SPASMS
  3. LYRICA [Suspect]
     Indication: DEGENERATION OF CERVICAL INTERVERTEBRAL DISC
  4. GABAPENTIN [Suspect]
     Indication: NERVE DAMAGE
     Dosage: UNK
     Dates: start: 201205, end: 201209
  5. GABAPENTIN [Suspect]
     Indication: MUSCLE SPASMS
  6. GABAPENTIN [Suspect]
     Indication: CERVICAL DISC DEGENERATION
  7. METFORMIN HCL [Suspect]
     Indication: DIABETES
     Dosage: 500 mg, 3x/day
  8. GABAPENTIN [Suspect]
     Indication: NERVE DAMAGE
     Dosage: 300mg daily and was titrated to a maximum of 300mg four times a day
     Dates: start: 20121014
  9. GABAPENTIN [Suspect]
     Indication: MUSCLE SPASMS
     Dosage: 300 mg, 4x/day
     Dates: end: 201210
  10. GABAPENTIN [Suspect]
     Indication: CERVICAL DISC DEGENERATION

REACTIONS (6)
  - Weight increased [Unknown]
  - Inappropriate schedule of drug administration [Unknown]
  - Drug ineffective [Unknown]
  - Gingival bleeding [Unknown]
  - Gingival pain [Unknown]
  - Therapeutic response unexpected [Unknown]
